FAERS Safety Report 15037898 (Version 1)
Quarter: 2018Q2

REPORT INFORMATION
  Report Type: Spontaneous
  Country: US (occurrence: US)
  Receive Date: 20180620
  Receipt Date: 20180620
  Transmission Date: 20180711
  Serious: Yes (Life-Threatening, Hospitalization, Other)
  Sender: FDA-Public Use
  Company Number: US-BAUSCH-BL-2018-017083

PATIENT
  Age: 22 Year
  Sex: Female

DRUGS (1)
  1. METFORMIN [Suspect]
     Active Substance: METFORMIN HYDROCHLORIDE
     Indication: PRODUCT USED FOR UNKNOWN INDICATION
     Route: 048

REACTIONS (19)
  - Hypoglycaemia [Recovering/Resolving]
  - Delirium [Recovered/Resolved]
  - Hypothermia [Recovering/Resolving]
  - Tachycardia [Recovering/Resolving]
  - Unresponsive to stimuli [Recovering/Resolving]
  - Flushing [Recovering/Resolving]
  - Intentional overdose [Recovering/Resolving]
  - Gastrointestinal sounds abnormal [Recovering/Resolving]
  - Anhidrosis [Recovering/Resolving]
  - Hypotension [Recovering/Resolving]
  - Hyperglycaemia [Recovering/Resolving]
  - Lactic acidosis [Recovering/Resolving]
  - Tachypnoea [Recovering/Resolving]
  - Hypertension [Recovering/Resolving]
  - Shock [Recovering/Resolving]
  - Toxicity to various agents [Recovering/Resolving]
  - Mydriasis [Recovering/Resolving]
  - Electrocardiogram QT prolonged [Recovering/Resolving]
  - Mental status changes [Recovered/Resolved]
